FAERS Safety Report 22065116 (Version 2)
Quarter: 2023Q1

REPORT INFORMATION
  Report Type: Report from Study
  Country: US (occurrence: US)
  Receive Date: 20230306
  Receipt Date: 20230330
  Transmission Date: 20230418
  Serious: Yes (Hospitalization, Other)
  Sender: FDA-Public Use
  Company Number: US-BAYER-2023P001798

PATIENT
  Age: 62 Year
  Sex: Female
  Weight: 66.678 kg

DRUGS (6)
  1. ADEMPAS [Suspect]
     Active Substance: RIOCIGUAT
     Indication: Pulmonary arterial hypertension
     Dosage: UNK
     Route: 048
     Dates: start: 20220921
  2. ADEMPAS [Suspect]
     Active Substance: RIOCIGUAT
     Indication: Pulmonary arterial hypertension
     Dosage: 1.5 MG, TID
     Route: 048
  3. ADEMPAS [Suspect]
     Active Substance: RIOCIGUAT
     Indication: Pulmonary arterial hypertension
     Dosage: 1.5 MG, TID
     Route: 048
     Dates: start: 20221205
  4. UPTRAVI [Concomitant]
     Active Substance: SELEXIPAG
  5. UPTRAVI [Concomitant]
     Active Substance: SELEXIPAG
  6. OPSUMIT [Concomitant]
     Active Substance: MACITENTAN

REACTIONS (15)
  - Syncope [None]
  - Syncope [None]
  - Joint injury [None]
  - Face injury [None]
  - Hospitalisation [None]
  - Heart rate increased [Not Recovered/Not Resolved]
  - Anxiety [None]
  - Insomnia [None]
  - Illness [None]
  - Asthenia [None]
  - Fatigue [None]
  - Blood pressure decreased [Not Recovered/Not Resolved]
  - Product dose omission issue [None]
  - Incorrect product administration duration [None]
  - Malaise [Not Recovered/Not Resolved]

NARRATIVE: CASE EVENT DATE: 20230224
